FAERS Safety Report 11819294 (Version 1)
Quarter: 2015Q4

REPORT INFORMATION
  Report Type: Spontaneous
  Country: US (occurrence: None)
  Receive Date: 20151209
  Receipt Date: 20151209
  Transmission Date: 20160305
  Serious: Yes (Other)
  Sender: FDA-Public Use
  Company Number: None

PATIENT
  Age: 58 Year
  Sex: Female
  Weight: 46.72 kg

DRUGS (12)
  1. TUMS [Concomitant]
     Active Substance: CALCIUM CARBONATE
  2. TUDORZA PRESSAIR [Suspect]
     Active Substance: ACLIDINIUM BROMIDE
     Indication: CHRONIC OBSTRUCTIVE PULMONARY DISEASE
     Dosage: 1 PUFF TWICE DAILY MORNING AND EVENING BY MOUTH INHALATION
     Route: 055
     Dates: start: 20151028, end: 20151122
  3. OXYGEN. [Concomitant]
     Active Substance: OXYGEN
  4. NEBULIZER [Concomitant]
     Active Substance: DEVICE
  5. IPRAT-BROM (DUONEB) [Concomitant]
  6. SYMBICORT [Concomitant]
     Active Substance: BUDESONIDE\FORMOTEROL FUMARATE DIHYDRATE
  7. PREDNISONE. [Concomitant]
     Active Substance: PREDNISONE
  8. ACETAMINOPHEN. [Concomitant]
     Active Substance: ACETAMINOPHEN
  9. VITAMIN D3 [Concomitant]
     Active Substance: CHOLECALCIFEROL
  10. COUGH SYRUP [Concomitant]
     Active Substance: DEXTROMETHORPHAN HYDROBROMIDE\GUAIFENESIN
  11. TUDORZA PRESSAIR [Suspect]
     Active Substance: ACLIDINIUM BROMIDE
     Indication: BRONCHITIS CHRONIC
     Dosage: 1 PUFF TWICE DAILY MORNING AND EVENING BY MOUTH INHALATION
     Route: 055
     Dates: start: 20151028, end: 20151122
  12. ALBUTEROL. [Concomitant]
     Active Substance: ALBUTEROL

REACTIONS (2)
  - Device failure [None]
  - Device malfunction [None]

NARRATIVE: CASE EVENT DATE: 20151122
